FAERS Safety Report 5700860-8 (Version None)
Quarter: 2008Q2

REPORT INFORMATION
  Report Type: 
  Country: None (occurrence: None)
  Receive Date: 20080407
  Receipt Date: 20080325
  Transmission Date: 20081010
  Serious: Yes (Other)
  Sender: FDA-Public Use
  Company Number: 2008AL001882

PATIENT
  Age: 55 Year
  Sex: Female

DRUGS (3)
  1. CITALOPRAM HYDROBROMIDE [Suspect]
     Dosage: 20 MG; QD
     Dates: start: 20050701
  2. LEVOTHYROXINE SODIUM [Concomitant]
  3. IMIPRAMINE [Concomitant]

REACTIONS (6)
  - ANGLE CLOSURE GLAUCOMA [None]
  - ANXIETY [None]
  - HYPERMETROPIA [None]
  - MYDRIASIS [None]
  - PUPILLARY REFLEX IMPAIRED [None]
  - VISION BLURRED [None]
